FAERS Safety Report 9376129 (Version 1)
Quarter: 2013Q3

REPORT INFORMATION
  Report Type: Report from Study
  Country: US (occurrence: US)
  Receive Date: 20130701
  Receipt Date: 20130701
  Transmission Date: 20140515
  Serious: No
  Sender: FDA-Public Use
  Company Number: US-009507513-1306USA009955

PATIENT
  Sex: Female

DRUGS (5)
  1. FOSAMAX [Suspect]
     Dosage: 8 PILLS A WEEK
     Route: 048
  2. FOSAMAX [Suspect]
     Dosage: 6 PILLS A WEEK
  3. HUMIRA [Suspect]
     Indication: PSORIATIC ARTHROPATHY
  4. METHOTREXATE [Suspect]
     Dosage: 8 DF, QW
  5. METHOTREXATE [Suspect]
     Dosage: 6 DF, QW

REACTIONS (2)
  - Liver function test abnormal [Unknown]
  - Alopecia [Unknown]
